FAERS Safety Report 4677970-X (Version None)
Quarter: 2005Q2

REPORT INFORMATION
  Report Type: 
  Country: None (occurrence: None)
  Receive Date: 20050531
  Receipt Date: 20050516
  Transmission Date: 20051028
  Serious: Yes (Hospitalization)
  Sender: FDA-Public Use
  Company Number: HQWYE741516MAY05

PATIENT
  Sex: Female

DRUGS (5)
  1. ENBREL [Suspect]
     Indication: ANKYLOSING SPONDYLITIS
     Route: 058
     Dates: start: 20050324, end: 20050411
  2. DICLOFENAC [Suspect]
     Indication: ANKYLOSING SPONDYLITIS
     Dosage: 100 MG AS NEEDED
     Dates: start: 20040501
  3. MEDROL [Concomitant]
     Indication: ANKYLOSING SPONDYLITIS
     Dates: start: 20040501
  4. ACIDUM FOLICUM [Concomitant]
     Indication: PROPHYLAXIS
  5. METHOTREXATE [Concomitant]
     Route: 065
     Dates: start: 20030824

REACTIONS (2)
  - DERMATITIS ALLERGIC [None]
  - RASH PUSTULAR [None]
